FAERS Safety Report 19083742 (Version 1)
Quarter: 2021Q2

REPORT INFORMATION
  Report Type: Spontaneous
  Country: US (occurrence: US)
  Receive Date: 20210401
  Receipt Date: 20210401
  Transmission Date: 20210717
  Serious: Yes (Life-Threatening, Hospitalization)
  Sender: FDA-Public Use
  Company Number: US-TEVA-2021-US-1895775

PATIENT
  Age: 55 Year
  Sex: Male

DRUGS (8)
  1. AMLODIPINE [Suspect]
     Active Substance: AMLODIPINE BESYLATE
     Indication: OVERDOSE
     Route: 048
  2. NOREPINEPHRINE. [Suspect]
     Active Substance: NOREPINEPHRINE
     Indication: CARDIOGENIC SHOCK
     Dosage: 0.6 UG/KG/MIN
     Route: 065
  3. INSULIN [Suspect]
     Active Substance: INSULIN NOS
     Indication: DRUG THERAPY
     Dosage: HIGH DOSE: 4 UNITS/KG/HR
     Route: 065
  4. GLUCAGON. [Suspect]
     Active Substance: GLUCAGON
     Indication: DRUG THERAPY
     Dosage: AS NEEDED
     Route: 065
  5. EPINEPHRINE. [Suspect]
     Active Substance: EPINEPHRINE
     Indication: CARDIOGENIC SHOCK
     Dosage: 0.23 UG/KG/MIN
     Route: 065
  6. NOREPINEPHRINE. [Suspect]
     Active Substance: NOREPINEPHRINE
     Dosage: 0.2 UG/KG/MI
     Route: 065
  7. EPINEPHRINE. [Suspect]
     Active Substance: EPINEPHRINE
     Indication: CARDIOGENIC SHOCK
     Dosage: 0.5 UG/KG/MIN
     Route: 065
  8. VASOPRESSIN. [Suspect]
     Active Substance: VASOPRESSIN
     Indication: CARDIOGENIC SHOCK
     Dosage: 57.6 IU (INTERNATIONAL UNIT) DAILY;
     Route: 065

REACTIONS (5)
  - Cardiotoxicity [Recovering/Resolving]
  - Acute kidney injury [Recovered/Resolved]
  - Cardiogenic shock [Recovering/Resolving]
  - Overdose [Unknown]
  - Drug ineffective [Unknown]
